FAERS Safety Report 13433975 (Version 2)
Quarter: 2017Q3

REPORT INFORMATION
  Report Type: Spontaneous
  Country: DE (occurrence: DE)
  Receive Date: 20170413
  Receipt Date: 20170814
  Transmission Date: 20171127
  Serious: Yes (Other)
  Sender: FDA-Public Use
  Company Number: DE-SA-2017SA062243

PATIENT
  Age: 34 Year
  Sex: Female

DRUGS (1)
  1. LEMTRADA [Suspect]
     Active Substance: ALEMTUZUMAB
     Indication: MULTIPLE SCLEROSIS
     Dosage: USUAL PATTERN
     Route: 041
     Dates: start: 201608

REACTIONS (11)
  - Lack of satiety [Not Recovered/Not Resolved]
  - White blood cells urine positive [Unknown]
  - Urinary sediment present [Unknown]
  - Lymphocyte percentage decreased [Unknown]
  - Autoimmune disorder [Not Recovered/Not Resolved]
  - Bacterial test [Unknown]
  - Band neutrophil percentage decreased [Unknown]
  - Endocrine disorder [Not Recovered/Not Resolved]
  - Neutrophil toxic granulation present [Unknown]
  - Neutrophil percentage increased [Unknown]
  - Eosinophil percentage decreased [Unknown]

NARRATIVE: CASE EVENT DATE: 201708
